FAERS Safety Report 12431977 (Version 2)
Quarter: 2018Q4

REPORT INFORMATION
  Report Type: Spontaneous
  Country: DE (occurrence: DE)
  Receive Date: 20160603
  Receipt Date: 20181001
  Transmission Date: 20190204
  Serious: Yes (Death, Life-Threatening, Other)
  Sender: FDA-Public Use
  Company Number: DE-STRIDES ARCOLAB LIMITED-2016SP005112

PATIENT

DRUGS (9)
  1. HEPARIN [Concomitant]
     Active Substance: HEPARIN SODIUM
     Indication: ANTICOAGULANT THERAPY
     Dosage: 3000 IU, UNK
     Route: 042
  2. ACETYLSALICYLIC ACID [Interacting]
     Active Substance: ASPIRIN
     Dosage: 100 MG, QD
  3. TICAGRELOR. [Concomitant]
     Active Substance: TICAGRELOR
     Indication: ANTIPLATELET THERAPY
     Dosage: 180 MG, QD
     Route: 048
  4. TICAGRELOR. [Concomitant]
     Active Substance: TICAGRELOR
     Dosage: 90 MG, BID
     Route: 048
  5. ACETYLSALICYLIC ACID [Interacting]
     Active Substance: ASPIRIN
     Indication: ANTIPLATELET THERAPY
     Dosage: 500 MG, UNK
     Route: 048
  6. DEXAMETHASONE. [Concomitant]
     Active Substance: DEXAMETHASONE
     Indication: PROPHYLAXIS
     Dosage: 40 MG, UNK
     Route: 042
  7. EPTIFIBATIDE. [Concomitant]
     Active Substance: EPTIFIBATIDE
     Indication: ANTIPLATELET THERAPY
     Dosage: 15.8 MG, BODY WEIGHT ADAPTED BOLUS
     Route: 065
  8. IBUPROFEN. [Suspect]
     Active Substance: IBUPROFEN
     Indication: PRODUCT USED FOR UNKNOWN INDICATION
     Dosage: 400 MG, QD, TAKEN AT LEAST 2 H AFTER ASA
     Route: 048
  9. DEXAMETHASONE. [Concomitant]
     Active Substance: DEXAMETHASONE
     Indication: STEROID THERAPY
     Dosage: 4 MG, TID

REACTIONS (10)
  - Brain herniation [Fatal]
  - Drug interaction [Fatal]
  - Cardio-respiratory arrest [Fatal]
  - Basilar artery occlusion [Unknown]
  - Fall [Unknown]
  - Product administration error [Unknown]
  - Arterial thrombosis [Fatal]
  - Brain oedema [Fatal]
  - Coma [Unknown]
  - Cerebral ischaemia [Unknown]
